FAERS Safety Report 5951272-3 (Version None)
Quarter: 2008Q4

REPORT INFORMATION
  Report Type: 
  Country: None (occurrence: None)
  Receive Date: 20081113
  Receipt Date: 20081111
  Transmission Date: 20090506
  Serious: Yes (Hospitalization)
  Sender: FDA-Public Use
  Company Number: ES-BRISTOL-MYERS SQUIBB COMPANY-14403018

PATIENT
  Age: 67 Year
  Sex: Male
  Weight: 93 kg

DRUGS (13)
  1. CISPLATIN [Suspect]
     Indication: NON-SMALL CELL LUNG CANCER
     Route: 042
     Dates: start: 20080910, end: 20080910
  2. CP-751,871 [Suspect]
     Indication: NON-SMALL CELL LUNG CANCER
     Dosage: STARTED ON: 10-SEP-2008
     Route: 042
     Dates: start: 20081009, end: 20081009
  3. GEMCITABINE HCL [Suspect]
     Indication: NON-SMALL CELL LUNG CANCER
     Dosage: STARTED ON 10-SEP-08.
     Route: 042
     Dates: start: 20081009, end: 20081009
  4. IRBESARTAN [Concomitant]
  5. CLOPIDOGREL BISULFATE [Concomitant]
  6. OMEPRAZOLE [Concomitant]
     Route: 048
  7. BISOPROLOL FUMARATE [Concomitant]
     Route: 048
  8. ATORVASTATIN CALCIUM [Concomitant]
     Route: 048
  9. ALLOPURINOL [Concomitant]
     Route: 048
  10. ACETAMINOPHEN [Concomitant]
     Route: 048
  11. AMOXICILLIN + CLAVULANATE POTASSIUM [Concomitant]
     Route: 048
  12. CIPROFLOXACIN [Concomitant]
     Route: 048
  13. HYDROCHLOROTHIAZIDE [Concomitant]

REACTIONS (2)
  - DIABETIC HYPEROSMOLAR COMA [None]
  - RENAL FAILURE ACUTE [None]
